FAERS Safety Report 10759201 (Version 1)
Quarter: 2015Q1

REPORT INFORMATION
  Report Type: Report from Study
  Country: US (occurrence: US)
  Receive Date: 20150203
  Receipt Date: 20150203
  Transmission Date: 20150721
  Serious: Yes (Hospitalization, Other)
  Sender: FDA-Public Use
  Company Number: PHEH2015US002083

PATIENT
  Age: 59 Year
  Sex: Female

DRUGS (1)
  1. GILENYA [Suspect]
     Active Substance: FINGOLIMOD HYDROCHLORIDE
     Indication: MULTIPLE SCLEROSIS
     Dosage: 0.5 MG, QD
     Route: 048
     Dates: start: 201306

REACTIONS (21)
  - Sepsis [Unknown]
  - Pulmonary hypertension [Unknown]
  - Cognitive disorder [Unknown]
  - Drug ineffective [Unknown]
  - Dyspnoea [Unknown]
  - Hypotension [Unknown]
  - Syncope [Unknown]
  - Anaemia [Unknown]
  - Multiple sclerosis relapse [Unknown]
  - Muscle twitching [Unknown]
  - Chest discomfort [Unknown]
  - Chest pain [Unknown]
  - Pain in extremity [Unknown]
  - Optic atrophy [Unknown]
  - Limb discomfort [Unknown]
  - Iron deficiency [Unknown]
  - Paraesthesia [Unknown]
  - Dysgraphia [Unknown]
  - Diabetes mellitus [Unknown]
  - Memory impairment [Unknown]
  - Muscular weakness [Unknown]

NARRATIVE: CASE EVENT DATE: 201308
